FAERS Safety Report 11428925 (Version 1)
Quarter: 2015Q3

REPORT INFORMATION
  Report Type: Spontaneous
  Country: US (occurrence: None)
  Receive Date: 20150827
  Receipt Date: 20150827
  Transmission Date: 20151125
  Serious: No
  Sender: FDA-Public Use
  Company Number: None

PATIENT
  Age: 47 Year
  Sex: Male

DRUGS (1)
  1. TECFIDERA [Suspect]
     Active Substance: DIMETHYL FUMARATE
     Indication: MULTIPLE SCLEROSIS
     Route: 048
     Dates: start: 20150807, end: 20150819

REACTIONS (6)
  - Headache [None]
  - Diarrhoea [None]
  - Pain in extremity [None]
  - Fatigue [None]
  - Disorientation [None]
  - Flushing [None]

NARRATIVE: CASE EVENT DATE: 20150819
